FAERS Safety Report 7942128-5 (Version None)
Quarter: 2011Q4

REPORT INFORMATION
  Report Type: 
  Country: None (occurrence: None)
  Receive Date: 20111128
  Receipt Date: 20111127
  Transmission Date: 20120403
  Serious: Yes (Other)
  Sender: FDA-Public Use
  Company Number: US-PFIZER INC-2011283304

PATIENT
  Sex: Male
  Weight: 108.84 kg

DRUGS (10)
  1. CHANTIX [Suspect]
     Indication: SMOKING CESSATION THERAPY
     Dosage: 0.5 MG, 1X/DAY
     Route: 048
     Dates: start: 20111116, end: 20111101
  2. SIMVASTATIN [Concomitant]
     Dosage: UNK
  3. FENOFIBRATE [Concomitant]
     Dosage: UNK
  4. SPIRIVA [Concomitant]
     Dosage: UNK
  5. ALBUTEROL [Concomitant]
     Dosage: UNK
     Route: 055
  6. ABILIFY [Concomitant]
     Dosage: UNK
  7. EFFEXOR XR [Concomitant]
     Dosage: UNK
  8. OMEPRAZOLE [Concomitant]
     Indication: GASTROOESOPHAGEAL REFLUX DISEASE
     Dosage: UNK
  9. CHANTIX [Suspect]
     Dosage: 1 MG, 2X/DAY
     Route: 048
     Dates: start: 20111101, end: 20111126
  10. LUNESTA [Concomitant]
     Dosage: UNK

REACTIONS (2)
  - SPEECH DISORDER [None]
  - TONGUE BLISTERING [None]
